FAERS Safety Report 5021757-5 (Version None)
Quarter: 2006Q2

REPORT INFORMATION
  Report Type: 
  Country: None (occurrence: None)
  Receive Date: 20060605
  Receipt Date: 20060522
  Transmission Date: 20061013
  Serious: Yes (Other)
  Sender: FDA-Public Use
  Company Number: 2004116313

PATIENT
  Age: 70 Year
  Sex: Female

DRUGS (8)
  1. BEXTRA [Suspect]
     Indication: EPICONDYLITIS
     Dosage: 20 MG (20 MG, 1 IN 1 D), ORAL
     Route: 048
     Dates: start: 20040101, end: 20040819
  2. BEXTRA [Suspect]
     Indication: PAIN
     Dosage: 20 MG (20 MG, 1 IN 1 D), ORAL
     Route: 048
     Dates: start: 20040101, end: 20040819
  3. LIPITOR [Suspect]
     Indication: BLOOD CHOLESTEROL INCREASED
     Dosage: 10 MG (10 MG, QD INTERVAL: EVERY DAY)
     Dates: start: 20050501
  4. ADVIL [Suspect]
     Indication: ILL-DEFINED DISORDER
  5. VITAMIN B6 [Concomitant]
  6. VITAMIN B COMPLEX CAP [Concomitant]
  7. MAGNESIUM [Concomitant]
  8. CENTRUM SILVER (ASCORBIC ACID, CALCIUM, MINERALS NOS, RETINOL, TOCOPHE [Concomitant]

REACTIONS (14)
  - ANXIETY [None]
  - CHEST DISCOMFORT [None]
  - CHEST PAIN [None]
  - CONDITION AGGRAVATED [None]
  - DIZZINESS [None]
  - ERYTHEMA [None]
  - FEELING ABNORMAL [None]
  - GASTRIC DISORDER [None]
  - HEART RATE INCREASED [None]
  - MUSCLE SPASMS [None]
  - NEUROPATHY [None]
  - OPTIC NERVE CUPPING [None]
  - PALPITATIONS [None]
  - ROTATOR CUFF SYNDROME [None]
